FAERS Safety Report 9550170 (Version 3)
Quarter: 2013Q4

REPORT INFORMATION
  Report Type: Spontaneous
  Country: DE (occurrence: DE)
  Receive Date: 20130924
  Receipt Date: 20131029
  Transmission Date: 20140711
  Serious: Yes (Hospitalization, Other)
  Sender: FDA-Public Use
  Company Number: PHHY2013DE097740

PATIENT
  Age: 62 Year
  Sex: Male

DRUGS (10)
  1. EXTAVIA [Suspect]
     Indication: MULTIPLE SCLEROSIS
     Dosage: UNK UKN, EVERY OTHER DAY
     Route: 058
  2. TAMSULOSIN [Concomitant]
     Dosage: 0.4 MG, ONCE DAILY
  3. FAMPYRA [Concomitant]
     Dosage: 10 MG, ONCE DAILY
  4. BACLOFEN [Concomitant]
     Dosage: 10 MG, (1/2 -1/2-1)
  5. SAROTEN RETARD [Concomitant]
     Dosage: 25 MG, QHS
  6. FOLSAN [Concomitant]
     Dosage: 5 MG, TWICE PER WEEK
  7. VITAMIN B12 [Concomitant]
     Dosage: UNK UKN, ONCE PER MONTH
  8. URBASON                                 /GFR/ [Concomitant]
     Indication: GAIT DISTURBANCE
     Dosage: 1000 MG, UNK
     Dates: start: 201304, end: 201304
  9. MONO EMBOLEX [Concomitant]
     Indication: THROMBOSIS PROPHYLAXIS
     Dosage: UNK UKN, UNK
     Dates: start: 201304, end: 201304
  10. PANTOZOL [Concomitant]
     Indication: PROPHYLAXIS AGAINST GASTROINTESTINAL ULCER
     Dosage: UNK UKN, UNK
     Dates: start: 201304, end: 201304

REACTIONS (12)
  - Sepsis [Recovered/Resolved]
  - Phlebitis [Recovered/Resolved]
  - General physical health deterioration [Recovered/Resolved]
  - Pyrexia [Recovered/Resolved]
  - Pain [Recovered/Resolved]
  - Erythema [Recovered/Resolved]
  - Swelling [Recovered/Resolved]
  - Multiple sclerosis relapse [Unknown]
  - Muscle spasticity [Unknown]
  - Multiple sclerosis [Unknown]
  - Hypertension [Unknown]
  - Application site necrosis [Unknown]
